FAERS Safety Report 7608853-0 (Version None)
Quarter: 2011Q3

REPORT INFORMATION
  Report Type: 
  Country: None (occurrence: None)
  Receive Date: 20110713
  Receipt Date: 20110713
  Transmission Date: 20111222
  Serious: Yes (Hospitalization)
  Sender: FDA-Public Use
  Company Number: None

PATIENT
  Age: 57 Year
  Sex: Male
  Weight: 74.3 kg

DRUGS (1)
  1. FUROSEMIDE [Suspect]
     Dosage: 20 MG BID PO
     Route: 048
     Dates: start: 20110124, end: 20110503

REACTIONS (1)
  - HYPOKALAEMIA [None]
